FAERS Safety Report 5045791-4 (Version None)
Quarter: 2006Q2

REPORT INFORMATION
  Report Type: 
  Country: None (occurrence: None)
  Receive Date: 20060601
  Receipt Date: 20060210
  Transmission Date: 20061013
  Serious: No
  Sender: FDA-Public Use
  Company Number: 2006-BP-13328BP

PATIENT
  Age: 57 Year
  Sex: Female
  Weight: 51.7 kg

DRUGS (8)
  1. SPIRIVA [Suspect]
     Indication: CHRONIC OBSTRUCTIVE PULMONARY DISEASE
     Dosage: 18 MCG (18 MCG), IH
     Route: 055
     Dates: start: 20050707
  2. ADVAIR (SERETIDE /01420901/) [Concomitant]
  3. ACCOLATE [Concomitant]
  4. ALBUTEROL/ATROVENT NEBULIZER [Concomitant]
  5. NASAL OXYGEN [Concomitant]
  6. PREDNISONE TAB [Concomitant]
  7. LEXAPRO [Concomitant]
  8. SINGULAIR [Concomitant]

REACTIONS (2)
  - AGEUSIA [None]
  - HYPOAESTHESIA ORAL [None]
